FAERS Safety Report 4290718-6 (Version None)
Quarter: 2004Q1

REPORT INFORMATION
  Report Type: 
  Country: None (occurrence: None)
  Receive Date: 20040209
  Receipt Date: 20040126
  Transmission Date: 20041129
  Serious: Yes (Hospitalization, Other)
  Sender: FDA-Public Use
  Company Number: 2004002314

PATIENT
  Age: 59 Year
  Sex: Male
  Weight: 65 kg

DRUGS (2)
  1. VIAGRA [Suspect]
     Indication: ILL-DEFINED DISORDER
     Dosage: 100 MG ONCE, ORAL
     Route: 048
     Dates: start: 20040101, end: 20040101
  2. TRIAZOLAM [Suspect]
     Indication: ILL-DEFINED DISORDER
     Dosage: ONCE, ORAL
     Route: 048
     Dates: start: 20040101, end: 20040101

REACTIONS (5)
  - ASTHENIA [None]
  - BRADYCARDIA [None]
  - HEART RATE DECREASED [None]
  - MUSCULAR WEAKNESS [None]
  - SUICIDE ATTEMPT [None]
